FAERS Safety Report 11647441 (Version 1)
Quarter: 2015Q4

REPORT INFORMATION
  Report Type: Spontaneous
  Country: GB (occurrence: GB)
  Receive Date: 20151021
  Receipt Date: 20151021
  Transmission Date: 20160304
  Serious: Yes (Hospitalization)
  Sender: FDA-Public Use
  Company Number: GB-ACCORD-034491

PATIENT
  Age: 84 Year
  Sex: Female
  Weight: 52.4 kg

DRUGS (7)
  1. RAMIPRIL. [Suspect]
     Active Substance: RAMIPRIL
     Indication: PRODUCT USED FOR UNKNOWN INDICATION
     Route: 048
     Dates: end: 20150922
  2. FUROSEMIDE. [Suspect]
     Active Substance: FUROSEMIDE
     Indication: PRODUCT USED FOR UNKNOWN INDICATION
     Dosage: IN MORNING
     Route: 048
     Dates: end: 20150923
  3. BISOPROLOL [Concomitant]
     Active Substance: BISOPROLOL
  4. BUPRENORPHINE. [Concomitant]
     Active Substance: BUPRENORPHINE
  5. TROSPIUM/TROSPIUM CHLORIDE [Concomitant]
  6. OMEPRAZOLE. [Concomitant]
     Active Substance: OMEPRAZOLE
  7. COLECALCIFEROL [Concomitant]
     Active Substance: CHOLECALCIFEROL

REACTIONS (3)
  - Urinary tract infection [Unknown]
  - Acute kidney injury [Recovering/Resolving]
  - Dehydration [Unknown]
